FAERS Safety Report 14575242 (Version 1)
Quarter: 2018Q1

REPORT INFORMATION
  Report Type: Spontaneous
  Country: US (occurrence: US)
  Receive Date: 20180227
  Receipt Date: 20180227
  Transmission Date: 20180509
  Serious: No
  Sender: FDA-Public Use
  Company Number: US-ROCHE-2038958

PATIENT
  Sex: Female

DRUGS (11)
  1. SINGULAIR [Concomitant]
     Active Substance: MONTELUKAST SODIUM
  2. PREDNISONE. [Concomitant]
     Active Substance: PREDNISONE
  3. FLUCONAZOLE. [Concomitant]
     Active Substance: FLUCONAZOLE
  4. AZITHROMYCIN ANHYDROUS. [Concomitant]
     Active Substance: AZITHROMYCIN ANHYDROUS
  5. ESTRADIOL. [Concomitant]
     Active Substance: ESTRADIOL
  6. CLINDAMYCIN HCL [Concomitant]
     Active Substance: CLINDAMYCIN HYDROCHLORIDE
  7. CLOTRIMAZOLE. [Concomitant]
     Active Substance: CLOTRIMAZOLE
  8. FLUVIRIN (UNITED STATES) [Concomitant]
     Dosage: 2013-2014
     Route: 065
  9. LISINOPRIL. [Concomitant]
     Active Substance: LISINOPRIL
  10. XOLAIR [Suspect]
     Active Substance: OMALIZUMAB
     Indication: ASTHMA
     Dosage: ONGOING;ADMINISTER 300MG SC EVERY 2WKS AS DIRECTED
     Route: 058
     Dates: start: 20170914
  11. ALBUTEROL/ALBUTEROL SULFATE/IPRATROPIUM BROMIDE [Concomitant]

REACTIONS (3)
  - Nasopharyngitis [Recovered/Resolved]
  - Pyrexia [Recovered/Resolved]
  - Pruritus [Recovered/Resolved]
